FAERS Safety Report 5313251-9 (Version None)
Quarter: 2007Q2

REPORT INFORMATION
  Report Type: 
  Country: None (occurrence: None)
  Receive Date: 20070501
  Receipt Date: 20070426
  Transmission Date: 20071010
  Serious: Yes (Death)
  Sender: FDA-Public Use
  Company Number: RU-JNJFOC-20070403958

PATIENT
  Age: 50 Year
  Sex: Female

DRUGS (8)
  1. LEVOFLOXACIN [Suspect]
     Indication: NOSOCOMIAL INFECTION
     Route: 065
  2. GLUCOSE [Concomitant]
     Route: 042
  3. POTASSIUM CHLORIDE [Concomitant]
     Route: 042
  4. INTERFERON ALFA-2B [Concomitant]
     Route: 042
  5. DIGOXIN [Concomitant]
     Route: 065
  6. UNKNOWN MEDICATION [Concomitant]
     Route: 048
  7. ENALAPRIL [Concomitant]
     Route: 048
  8. AMIODARONE HCL [Concomitant]
     Route: 048

REACTIONS (1)
  - PULMONARY EMBOLISM [None]
